FAERS Safety Report 6791248-X (Version None)
Quarter: 2010Q2

REPORT INFORMATION
  Report Type: 
  Country: None (occurrence: None)
  Receive Date: 20100624
  Receipt Date: 20100616
  Transmission Date: 20101027
  Serious: Yes (Other)
  Sender: FDA-Public Use
  Company Number: JP-BAXTER-2010BH016657

PATIENT
  Age: 68 Year
  Sex: Female

DRUGS (8)
  1. HOLOXAN BAXTER [Suspect]
     Indication: RETROPERITONEAL NEOPLASM
     Route: 065
     Dates: start: 20090501
  2. HOLOXAN BAXTER [Suspect]
     Indication: METASTASES TO LUNG
     Route: 065
     Dates: start: 20090501
  3. UROMITEXAN BAXTER [Suspect]
     Indication: RETROPERITONEAL NEOPLASM
     Route: 065
     Dates: start: 20090501
  4. UROMITEXAN BAXTER [Suspect]
     Indication: METASTASES TO LUNG
     Route: 065
     Dates: start: 20090501
  5. DOXORUBICIN HCL [Suspect]
     Indication: RETROPERITONEAL NEOPLASM
     Route: 065
     Dates: start: 20090501
  6. DOXORUBICIN HCL [Suspect]
     Indication: METASTASES TO LUNG
     Route: 065
     Dates: start: 20090501
  7. DACARBAZINE [Suspect]
     Indication: RETROPERITONEAL NEOPLASM
     Route: 065
     Dates: start: 20090501
  8. DACARBAZINE [Suspect]
     Indication: METASTASES TO LUNG
     Route: 065
     Dates: start: 20090501

REACTIONS (1)
  - BONE MARROW FAILURE [None]
